FAERS Safety Report 7377855-4 (Version None)
Quarter: 2011Q1

REPORT INFORMATION
  Report Type: 
  Country: None (occurrence: None)
  Receive Date: 20110328
  Receipt Date: 20110322
  Transmission Date: 20110831
  Serious: Yes (Death, Hospitalization, Other)
  Sender: FDA-Public Use
  Company Number: US-AMGEN GMBH-QUU440022

PATIENT
  Age: 75 Year
  Sex: Male
  Weight: 86.7 kg

DRUGS (18)
  1. CORTICOSTEROID NOS [Concomitant]
     Dosage: UNK UNK, UNK
     Dates: start: 20100310
  2. LISINOPRIL [Concomitant]
     Dosage: UNK UNK, UNK
     Route: 048
  3. CARBOPLATIN [Concomitant]
  4. FOLIC ACID [Concomitant]
  5. CYANOCOBALAMIN [Concomitant]
  6. POTASSIUM CHLORIDE [Concomitant]
  7. RITUXIMAB [Concomitant]
     Dosage: UNK UNK, UNK
     Dates: start: 20100420
  8. HYDROCHLOROTHIAZIDE [Concomitant]
  9. ACETYLSALICYLIC ACID [Concomitant]
     Dosage: UNK UNK, UNK
     Route: 048
  10. OMEPRAZOLE [Concomitant]
  11. PIOGLITAZONE HCL [Concomitant]
     Dosage: UNK UNK, UNK
     Route: 048
  12. FUROSEMIDE [Concomitant]
  13. METFORMIN [Concomitant]
     Dosage: UNK UNK, UNK
     Route: 048
  14. ATORVASTATIN CALCIUM [Concomitant]
     Dosage: UNK UNK, UNK
     Route: 048
  15. PEMETREXED DISODIUM [Concomitant]
  16. TAMSULOSIN HCL [Concomitant]
  17. NPLATE [Suspect]
     Indication: IDIOPATHIC THROMBOCYTOPENIC PURPURA
     Dosage: 10 A?G/KG, QWK
     Route: 058
     Dates: start: 20100505
  18. DEXAMETHASONE [Concomitant]

REACTIONS (8)
  - DEATH [None]
  - METASTASES TO BONE [None]
  - CEREBROVASCULAR ACCIDENT [None]
  - ANAEMIA [None]
  - PNEUMONITIS [None]
  - LUNG CANCER METASTATIC [None]
  - PNEUMONIA [None]
  - PLEURAL EFFUSION [None]
